FAERS Safety Report 6653339-3 (Version None)
Quarter: 2010Q1

REPORT INFORMATION
  Report Type: 
  Country: None (occurrence: None)
  Receive Date: 20100326
  Receipt Date: 20100318
  Transmission Date: 20100710
  Serious: Yes (Hospitalization)
  Sender: FDA-Public Use
  Company Number: GB-ROCHE-692060

PATIENT
  Sex: Female
  Weight: 69 kg

DRUGS (3)
  1. TRASTUZUMAB [Suspect]
     Indication: BREAST CANCER
     Route: 042
  2. DOCETAXEL [Suspect]
     Indication: BREAST CANCER
     Route: 042
     Dates: start: 20100301
  3. CARBOPLATIN [Suspect]
     Indication: BREAST CANCER
     Route: 042

REACTIONS (1)
  - NEUTROPENIC SEPSIS [None]
